FAERS Safety Report 5342701-7 (Version None)
Quarter: 2007Q2

REPORT INFORMATION
  Report Type: 
  Country: None (occurrence: None)
  Receive Date: 20070601
  Receipt Date: 20070226
  Transmission Date: 20071010
  Serious: No
  Sender: FDA-Public Use
  Company Number: A0640972A

PATIENT
  Age: 81 Year
  Sex: Male

DRUGS (8)
  1. AUGMENTIN '125' [Suspect]
     Indication: SKIN INFECTION
     Route: 048
     Dates: start: 20070217
  2. COUMADIN [Concomitant]
  3. METFORMIN HCL [Concomitant]
  4. AMARYL [Concomitant]
  5. MAGNESIUM SULFATE [Concomitant]
  6. POTASSIUM ACETATE [Concomitant]
  7. LASIX [Concomitant]
  8. PREDNISONE TAB [Concomitant]

REACTIONS (2)
  - CHROMATURIA [None]
  - NOCTURIA [None]
